FAERS Safety Report 5710273-0 (Version None)
Quarter: 2008Q2

REPORT INFORMATION
  Report Type: 
  Country: None (occurrence: None)
  Receive Date: 20080418
  Receipt Date: 20080416
  Transmission Date: 20081010
  Serious: Yes (Death, Hospitalization)
  Sender: FDA-Public Use
  Company Number: JP-BOEHRINGER INGELHEIM GMBH, GERMANY-2008-BP-05984NB

PATIENT
  Sex: Male
  Weight: 64.7 kg

DRUGS (5)
  1. MICARDIS [Suspect]
     Indication: HYPERTENSION
     Route: 048
     Dates: start: 20070106, end: 20070730
  2. ASPIRIN [Suspect]
     Route: 048
     Dates: start: 20070101, end: 20070601
  3. PANALDINE [Suspect]
     Route: 048
     Dates: start: 20070601, end: 20070601
  4. FAMOTIDINE [Concomitant]
     Indication: PROPHYLAXIS
     Route: 048
     Dates: start: 20070101, end: 20070601
  5. LIPITOR [Concomitant]
     Route: 048
     Dates: start: 20070101, end: 20070601

REACTIONS (1)
  - CEREBRAL HAEMORRHAGE [None]
